FAERS Safety Report 8045715-1 (Version None)
Quarter: 2012Q1

REPORT INFORMATION
  Report Type: 
  Country: None (occurrence: None)
  Receive Date: 20120113
  Receipt Date: 20120110
  Transmission Date: 20120608
  Serious: Yes (Other)
  Sender: FDA-Public Use
  Company Number: US-PFIZER INC-2012007818

PATIENT
  Sex: Female
  Weight: 79.819 kg

DRUGS (7)
  1. FLEXERIL [Concomitant]
     Dosage: UNK
  2. NEURONTIN [Suspect]
     Indication: PAIN
     Dosage: 1200 MG, 1X/DAY
     Route: 048
     Dates: start: 20111201
  3. SINGULAIR [Concomitant]
     Dosage: UNK
  4. MALIC ACID [Concomitant]
     Dosage: UNK
  5. LYRICA [Suspect]
     Dosage: UNK
     Route: 048
     Dates: end: 20111201
  6. NEURONTIN [Suspect]
     Indication: SLEEP DISORDER
  7. LYRICA [Suspect]
     Indication: FIBROMYALGIA
     Dosage: 300 MG, 1X/DAY
     Route: 048
     Dates: start: 20090201

REACTIONS (6)
  - DISCOMFORT [None]
  - PAIN [None]
  - VITAMIN D DECREASED [None]
  - INSOMNIA [None]
  - DRUG INEFFECTIVE [None]
  - THYROID FUNCTION TEST ABNORMAL [None]
